FAERS Safety Report 24924105 (Version 2)
Quarter: 2025Q2

REPORT INFORMATION
  Report Type: Spontaneous
  Country: CZ (occurrence: CZ)
  Receive Date: 20250204
  Receipt Date: 20250402
  Transmission Date: 20250717
  Serious: Yes (Hospitalization, Other)
  Sender: MYLAN
  Company Number: None

PATIENT
  Age: 78 Year
  Sex: Male
  Weight: 66 kg

DRUGS (5)
  1. VANCOMYCIN [Suspect]
     Active Substance: VANCOMYCIN
     Indication: Product used for unknown indication
     Dosage: 750 MILLIGRAM, QD, 750 MG DILUTE TO 250 ML, AFTER 24 HOURS, INFUSION DURATION 1.5 HOURS
     Dates: start: 20240429, end: 20240501
  2. PIPERACILLIN AND TAZOBACTAM [Concomitant]
     Active Substance: PIPERACILLIN SODIUM\TAZOBACTAM SODIUM
     Indication: Bacterial infection
  3. ERDOSTEINE [Concomitant]
     Active Substance: ERDOSTEINE
  4. ACETYLCYSTEINE [Concomitant]
     Active Substance: ACETYLCYSTEINE
  5. ENOXAPARIN SODIUM [Concomitant]
     Active Substance: ENOXAPARIN SODIUM
     Indication: Atrial fibrillation
     Dosage: 0.6 MILLILITER, QD, DUE TO THE ELEVATION OF LIVER ENZYMES
     Dates: start: 202404

REACTIONS (3)
  - Confusional state [Unknown]
  - Condition aggravated [Recovered/Resolved with Sequelae]
  - Vancomycin infusion reaction [Recovered/Resolved with Sequelae]

NARRATIVE: CASE EVENT DATE: 20240429
